FAERS Safety Report 9676298 (Version 1)
Quarter: 2013Q4

REPORT INFORMATION
  Report Type: Report from Study
  Country: US (occurrence: US)
  Receive Date: 20131107
  Receipt Date: 20131107
  Transmission Date: 20140711
  Serious: Yes (Death, Other)
  Sender: FDA-Public Use
  Company Number: US-ROCHE-1300091

PATIENT
  Sex: Male
  Weight: 61.29 kg

DRUGS (4)
  1. LUCENTIS [Suspect]
     Indication: AGE-RELATED MACULAR DEGENERATION
     Route: 065
  2. COREG [Concomitant]
     Indication: BLOOD PRESSURE
  3. FUROSEMIDE [Concomitant]
     Indication: ANAEMIA
  4. OMEPRAZOLE [Concomitant]

REACTIONS (2)
  - Death [Fatal]
  - Pulmonary mass [Unknown]
